FAERS Safety Report 16395082 (Version 1)
Quarter: 2019Q2

REPORT INFORMATION
  Report Type: Spontaneous
  Country: US (occurrence: US)
  Receive Date: 20190604
  Receipt Date: 20190604
  Transmission Date: 20190711
  Serious: Yes (Other)
  Sender: FDA-Public Use
  Company Number: None

PATIENT
  Age: 53 Year
  Sex: Female
  Weight: 61.92 kg

DRUGS (5)
  1. CAPECITABINE. [Suspect]
     Active Substance: CAPECITABINE
     Indication: MALIGNANT NIPPLE NEOPLASM FEMALE
     Route: 048
     Dates: start: 20190307
  2. DRAMAMINE [Concomitant]
     Active Substance: DIMENHYDRINATE
  3. DRAMAMINE FOR KIDS [Concomitant]
     Active Substance: DIMENHYDRINATE
  4. ACETAMINOPHEN. [Concomitant]
     Active Substance: ACETAMINOPHEN
  5. VITAMIN B3 [Concomitant]
     Active Substance: NIACIN

REACTIONS (1)
  - Skin discolouration [None]
